FAERS Safety Report 9957890 (Version 1)
Quarter: 2014Q1

REPORT INFORMATION
  Report Type: Report from Study
  Country: US (occurrence: US)
  Receive Date: 20140304
  Receipt Date: 20140304
  Transmission Date: 20141002
  Serious: No
  Sender: FDA-Public Use
  Company Number: US-ABBVIE-13P-163-1093088-00

PATIENT
  Age: 68 Year
  Sex: Female

DRUGS (8)
  1. HUMIRA [Suspect]
     Indication: CROHN^S DISEASE
     Dates: start: 201303
  2. MELOXICAM [Concomitant]
     Indication: SJOGREN^S SYNDROME
     Dosage: 16MG DAILY
  3. PROTONIX [Concomitant]
     Indication: GASTROOESOPHAGEAL REFLUX DISEASE
     Dosage: 40MG DAILY
  4. CITALOPRAM [Concomitant]
     Indication: DEPRESSION
     Dosage: 20MG DAILY
  5. BENAZEPRIL [Concomitant]
     Indication: BLOOD PRESSURE
     Dosage: 20MG DAILY
  6. AMLODIPINE [Concomitant]
     Indication: HYPERTENSION
  7. FOLIC ACID [Concomitant]
     Indication: PROPHYLAXIS OF NAUSEA AND VOMITING
  8. FOLIC ACID [Concomitant]
     Indication: STOMATITIS

REACTIONS (3)
  - Livedo reticularis [Not Recovered/Not Resolved]
  - Injection site pain [Not Recovered/Not Resolved]
  - Local swelling [Not Recovered/Not Resolved]
